FAERS Safety Report 6774726-9 (Version None)
Quarter: 2010Q2

REPORT INFORMATION
  Report Type: 
  Country: None (occurrence: None)
  Receive Date: 20100615
  Receipt Date: 20100615
  Transmission Date: 20101027
  Serious: Yes (Death)
  Sender: FDA-Public Use
  Company Number: None

PATIENT
  Age: 81 Year
  Sex: Male

DRUGS (3)
  1. PLAVIX [Suspect]
  2. ASPIRIN [Suspect]
  3. HEPARIN [Suspect]

REACTIONS (1)
  - HAEMORRHAGE INTRACRANIAL [None]
